FAERS Safety Report 5094568-2 (Version None)
Quarter: 2006Q3

REPORT INFORMATION
  Report Type: 
  Country: None (occurrence: None)
  Receive Date: 20060731
  Receipt Date: 20060501
  Transmission Date: 20061208
  Serious: No
  Sender: FDA-Public Use
  Company Number: 2006PV013044

PATIENT
  Age: 54 Year
  Sex: Female
  Weight: 99.7913 kg

DRUGS (5)
  1. BYETTA [Suspect]
     Indication: DIABETES MELLITUS NON-INSULIN-DEPENDENT
     Dosage: 5 MCG;BID;SC
     Route: 058
     Dates: start: 20060424
  2. METFORMIN HCL [Concomitant]
  3. AVANDIA [Concomitant]
  4. ZETIA [Concomitant]
  5. HYZAAR [Concomitant]

REACTIONS (3)
  - MUSCLE SPASMS [None]
  - NAUSEA [None]
  - URINE ANALYSIS ABNORMAL [None]
